FAERS Safety Report 18034286 (Version 1)
Quarter: 2020Q3

REPORT INFORMATION
  Report Type: Spontaneous
  Country: HR (occurrence: HR)
  Receive Date: 20200716
  Receipt Date: 20200716
  Transmission Date: 20201103
  Serious: Yes (Hospitalization, Other)
  Sender: FDA-Public Use
  Company Number: HR-SA-2020SA179283

PATIENT

DRUGS (10)
  1. CONTROLOC [Concomitant]
     Active Substance: PANTOPRAZOLE SODIUM
     Indication: ABDOMINAL PAIN UPPER
     Dosage: 40 MG, QD
     Route: 048
     Dates: start: 2020
  2. TOUJEO [Concomitant]
     Active Substance: INSULIN GLARGINE
     Indication: DIABETES MELLITUS
     Dosage: 20 IU, QD
     Route: 058
     Dates: start: 2014
  3. HUMALOG [Concomitant]
     Active Substance: INSULIN LISPRO
     Indication: DIABETES MELLITUS
     Dosage: 100 IU/ML,3X8IU
     Route: 058
  4. FLOSIN [TAMSULOSIN HYDROCHLORIDE] [Concomitant]
     Dosage: 0.4 MG
     Route: 048
  5. DOCETAXEL. [Suspect]
     Active Substance: DOCETAXEL
     Indication: PROSTATE CANCER
     Dosage: 160 MG, QCY
     Route: 042
     Dates: start: 202004, end: 202005
  6. LIPERTANCE [Concomitant]
     Dosage: 1 DF, QD,DF=20 MG ATORVASTATIN, 10 MG PERINDOPRILARGININE AND 5 MG AMLODIPINE
     Route: 048
  7. LASIX [Concomitant]
     Active Substance: FUROSEMIDE
     Dosage: 40 MG/0.5 DAY
     Route: 048
     Dates: start: 20200517
  8. KALINOR [CITRIC ACID;POTASSIUM BICARBONATE;POTASSIUM CITRATE] [Concomitant]
     Active Substance: CITRIC ACID MONOHYDRATE\POTASSIUM BICARBONATE\POTASSIUM CITRATE
     Dosage: 0.5 DF, QD,POTASSIUM CITRATE, 2.00 G OF POTASSIUM BICARBONATE AND 2.057 G OF CITRIC ACID,
     Route: 048
  9. PRAZINE [PROMAZINE HYDROCHLORIDE] [Concomitant]
     Active Substance: PROMAZINE HYDROCHLORIDE
     Dosage: 25 MG, QD
     Route: 048
  10. ANDOL PRO [Concomitant]
     Dosage: 75 MG
     Route: 048

REACTIONS (9)
  - Thirst [Unknown]
  - Hypoglycaemia [Unknown]
  - Vertigo [Unknown]
  - Peripheral swelling [Unknown]
  - Dermatitis bullous [Recovering/Resolving]
  - Vomiting [Unknown]
  - Decreased appetite [Unknown]
  - Cardiac failure [Recovering/Resolving]
  - Nocturnal dyspnoea [Unknown]

NARRATIVE: CASE EVENT DATE: 2020
